FAERS Safety Report 16271378 (Version 1)
Quarter: 2019Q2

REPORT INFORMATION
  Report Type: Spontaneous
  Country: JP (occurrence: JP)
  Receive Date: 20190503
  Receipt Date: 20190503
  Transmission Date: 20190711
  Serious: Yes (Life-Threatening, Other)
  Sender: FDA-Public Use
  Company Number: JP-PFIZER INC-2019179769

PATIENT
  Age: 70 Year
  Sex: Male

DRUGS (1)
  1. GEMCITABINE HYDROCHLORIDE. [Suspect]
     Active Substance: GEMCITABINE HYDROCHLORIDE
     Indication: PANCREATIC CARCINOMA METASTATIC
     Dosage: UNK, CYCLIC (STANDARD DOSE) (30-MINUTE INFUSION BASED ON BODY-SURFACE AREA)100% DOSE
     Route: 042

REACTIONS (7)
  - Neutropenia [Unknown]
  - Pancytopenia [Unknown]
  - Ileus paralytic [Recovering/Resolving]
  - Bone marrow failure [Recovering/Resolving]
  - Thrombocytopenia [Recovering/Resolving]
  - Constipation [Unknown]
  - Febrile neutropenia [Recovering/Resolving]
